FAERS Safety Report 25986447 (Version 1)
Quarter: 2025Q4

REPORT INFORMATION
  Report Type: Spontaneous
  Country: US (occurrence: US)
  Receive Date: 20251031
  Receipt Date: 20251031
  Transmission Date: 20260117
  Serious: No
  Sender: TRAVERE THERAPEUTICS
  Company Number: US-TRAVERE-2025TVT01900

PATIENT
  Age: 77 Year
  Sex: Female

DRUGS (1)
  1. FILSPARI [Suspect]
     Active Substance: SPARSENTAN
     Indication: IgA nephropathy
     Route: 048
     Dates: start: 202509

REACTIONS (5)
  - Nausea [Unknown]
  - Insomnia [Unknown]
  - Flank pain [None]
  - Discomfort [Unknown]
  - Dizziness [Unknown]
